FAERS Safety Report 23801892 (Version 1)
Quarter: 2024Q2

REPORT INFORMATION
  Report Type: Spontaneous
  Country: US (occurrence: US)
  Receive Date: 20240501
  Receipt Date: 20240501
  Transmission Date: 20240716
  Serious: Yes (Hospitalization, Other)
  Sender: FDA-Public Use
  Company Number: US-BRISTOL-MYERS SQUIBB COMPANY-2024-067078

PATIENT
  Age: 68 Year
  Sex: Female

DRUGS (1)
  1. REVLIMID [Suspect]
     Active Substance: LENALIDOMIDE
     Indication: Plasma cell myeloma
     Dosage: INDICATION: MULTIPLE MYELOMA NOT HAVING ACHIEVED REMISSION. FREQUENCY: 1 TIME A DAY FOR 21 DAYS ON A
     Route: 048
     Dates: start: 201910

REACTIONS (1)
  - Pneumonia [Unknown]
